FAERS Safety Report 12127953 (Version 1)
Quarter: 2016Q1

REPORT INFORMATION
  Report Type: Report from Study
  Country: CH (occurrence: CH)
  Receive Date: 20160229
  Receipt Date: 20160229
  Transmission Date: 20160526
  Serious: Yes (Other)
  Sender: FDA-Public Use
  Company Number: CH-ROCHE-1717930

PATIENT
  Age: 88 Year
  Sex: Male

DRUGS (3)
  1. COBIMETINIB [Suspect]
     Active Substance: COBIMETINIB
     Indication: METASTATIC MALIGNANT MELANOMA
     Route: 048
     Dates: start: 20150902
  2. ZELBORAF [Suspect]
     Active Substance: VEMURAFENIB
     Indication: METASTATIC MALIGNANT MELANOMA
     Route: 065
     Dates: start: 20150902
  3. COBIMETINIB [Suspect]
     Active Substance: COBIMETINIB
     Dosage: 20-40MG
     Route: 048
     Dates: end: 20160223

REACTIONS (3)
  - Chorioretinopathy [Not Recovered/Not Resolved]
  - Fatigue [Unknown]
  - Hyperthermia [Unknown]

NARRATIVE: CASE EVENT DATE: 20160223
